FAERS Safety Report 6507791-4 (Version None)
Quarter: 2009Q4

REPORT INFORMATION
  Report Type: 
  Country: None (occurrence: None)
  Receive Date: 20091221
  Receipt Date: 20091214
  Transmission Date: 20100525
  Serious: Yes (Hospitalization)
  Sender: FDA-Public Use
  Company Number: JP-MERCK-0912USA02156

PATIENT

DRUGS (2)
  1. PEPCID RPD [Suspect]
     Route: 048
     Dates: end: 20091203
  2. PEPCID RPD [Suspect]
     Route: 048
     Dates: start: 20091204, end: 20091208

REACTIONS (1)
  - ELECTROCARDIOGRAM QT PROLONGED [None]
